FAERS Safety Report 9729797 (Version 1)
Quarter: 2013Q4

REPORT INFORMATION
  Report Type: Spontaneous
  Country: US (occurrence: US)
  Receive Date: 20131204
  Receipt Date: 20131204
  Transmission Date: 20140711
  Serious: No
  Sender: FDA-Public Use
  Company Number: US-GILEAD-2009-0022468

PATIENT
  Sex: Female
  Weight: 64.41 kg

DRUGS (11)
  1. LETAIRIS [Suspect]
     Indication: PULMONARY ARTERIAL HYPERTENSION
     Route: 048
     Dates: start: 20090325
  2. ASPIRIN [Concomitant]
  3. NIFEDIPINE [Concomitant]
  4. SPIRONOLACTONE [Concomitant]
  5. ADVAIR [Concomitant]
  6. SPIRIVA [Concomitant]
  7. METHIMAZOLE [Concomitant]
  8. DELSYM [Concomitant]
  9. IBUPROFEN [Concomitant]
  10. MULTIVITAMIN [Concomitant]
  11. CALCIUM CITRATE + D [Concomitant]

REACTIONS (1)
  - Local swelling [Unknown]
